FAERS Safety Report 4355874-X (Version None)
Quarter: 2004Q2

REPORT INFORMATION
  Report Type: 
  Country: None (occurrence: None)
  Receive Date: 20040505
  Receipt Date: 20040429
  Transmission Date: 20050107
  Serious: Yes (Hospitalization, Other)
  Sender: FDA-Public Use
  Company Number: HQWYE816104FEB04

PATIENT
  Age: 65 Year
  Sex: Male

DRUGS (2)
  1. AMIODARONE HCL [Suspect]
     Dosage: HIGH-DOSED  ORAL
     Route: 048
     Dates: start: 20030801, end: 20031001
  2. UNSPECIFIED BETA BLOCKER (UNSPECIFIED BETA  BLOCKER) [Concomitant]

REACTIONS (4)
  - ANOREXIA [None]
  - FATIGUE [None]
  - HAEMOGLOBIN DECREASED [None]
  - JAUNDICE HEPATOCELLULAR [None]
